FAERS Safety Report 11265367 (Version 1)
Quarter: 2015Q3

REPORT INFORMATION
  Report Type: Spontaneous
  Country: JP (occurrence: JP)
  Receive Date: 20150713
  Receipt Date: 20150713
  Transmission Date: 20151125
  Serious: Yes (Hospitalization)
  Sender: FDA-Public Use
  Company Number: JP-BAYER-2015-370213

PATIENT
  Sex: Female

DRUGS (11)
  1. CLOTIAZEPAM [Concomitant]
     Active Substance: CLOTIAZEPAM
     Dosage: 520 MG, QD
     Route: 048
  2. BISOPROLOL [Concomitant]
     Active Substance: BISOPROLOL
     Dosage: 70 MG, QD
     Route: 048
  3. IMIDAPRIL HYDROCHLORIDE [Concomitant]
     Active Substance: IMIDAPRIL HYDROCHLORIDE
     Dosage: DAILY DOSE 250 MG
     Route: 048
  4. NITRAZEPAM [Concomitant]
     Active Substance: NITRAZEPAM
     Dosage: DAILY DOSE 75 MG
     Route: 048
  5. EFONIDIPINE HYDROCHLORIDE [Concomitant]
     Active Substance: EFONIDIPINE HYDROCHLORIDE
     Dosage: 600 MG, QD
     Route: 048
  6. TOFISOPAM [Concomitant]
     Active Substance: TOFISOPAM
     Dosage: DAILY DOSE 750 MG
     Route: 048
  7. LOSARTAN. [Concomitant]
     Active Substance: LOSARTAN
     Dosage: DAILY DOSE 500 MG
     Route: 048
  8. ETIZOLAM [Concomitant]
     Active Substance: ETIZOLAM
     Dosage: DAILY DOSE 6.5 MG
     Route: 048
  9. HYDROCHLOROTHIAZIDE. [Concomitant]
     Active Substance: HYDROCHLOROTHIAZIDE
     Dosage: DAILY DOSE 125 MG
     Route: 048
  10. NIFEDIPINE. [Suspect]
     Active Substance: NIFEDIPINE
     Indication: HYPERTENSION
     Dosage: 100 MG, QD
     Route: 048
  11. MIRTAZAPINE. [Concomitant]
     Active Substance: MIRTAZAPINE
     Dosage: DAILY DOSE 90 MG
     Route: 048

REACTIONS (3)
  - Hypotension [None]
  - Bradycardia [None]
  - Toxicity to various agents [None]
